FAERS Safety Report 16205375 (Version 1)
Quarter: 2019Q2

REPORT INFORMATION
  Report Type: Spontaneous
  Country: DK (occurrence: DK)
  Receive Date: 20190417
  Receipt Date: 20190417
  Transmission Date: 20190711
  Serious: Yes (Death, Hospitalization, Other)
  Sender: FDA-Public Use
  Company Number: DK-SUN PHARMACEUTICAL INDUSTRIES EUROPE B.V-2013SUN01055

PATIENT
  Age: 17 Year
  Sex: Male

DRUGS (9)
  1. OXALIPLATIN. [Suspect]
     Active Substance: OXALIPLATIN
     Indication: HEPATOCELLULAR CARCINOMA
     Dosage: 85 MG/M2, UNK
     Route: 065
  2. GEMCITABINE [Suspect]
     Active Substance: GEMCITABINE\GEMCITABINE HYDROCHLORIDE
     Indication: HEPATOCELLULAR CARCINOMA
     Dosage: 1000 MG/M2, DAY 1 AND DAY 8
     Route: 065
  3. GEMCITABINE [Suspect]
     Active Substance: GEMCITABINE\GEMCITABINE HYDROCHLORIDE
     Dosage: 1000 MG/M2, EVERY SECOND WEEK
     Route: 065
  4. CISPLATIN. [Suspect]
     Active Substance: CISPLATIN
     Dosage: 70 MG/M2, DAY 1
     Route: 065
  5. SORAFENIB [Suspect]
     Active Substance: SORAFENIB
     Dosage: 400 MG, QD
     Route: 065
  6. SORAFENIB [Suspect]
     Active Substance: SORAFENIB
     Indication: HEPATOCELLULAR CARCINOMA
     Dosage: 400 MG, BID
     Route: 065
  7. CISPLATIN. [Suspect]
     Active Substance: CISPLATIN
     Indication: HEPATOCELLULAR CARCINOMA
     Dosage: 100 MG/M2, UNK
     Route: 065
  8. TAXOL [Suspect]
     Active Substance: PACLITAXEL
     Indication: HEPATOCELLULAR CARCINOMA
     Dosage: 175 MG/M2, DAY 1
     Route: 065
  9. SORAFENIB [Suspect]
     Active Substance: SORAFENIB
     Dosage: 200 MG, QD (FOR TWO WEEKS)
     Route: 065

REACTIONS (10)
  - Malignant neoplasm progression [Fatal]
  - Neutropenia [Unknown]
  - Diarrhoea [Unknown]
  - Alopecia [Unknown]
  - Decreased appetite [Unknown]
  - Anaemia [Unknown]
  - Vomiting [Unknown]
  - Paraesthesia [Unknown]
  - Pruritus [Unknown]
  - Rash [Unknown]
